FAERS Safety Report 5771755-9 (Version None)
Quarter: 2008Q2

REPORT INFORMATION
  Report Type: 
  Country: None (occurrence: None)
  Receive Date: 20080613
  Receipt Date: 20080605
  Transmission Date: 20081010
  Serious: Yes (Other)
  Sender: FDA-Public Use
  Company Number: US-ROCHE-568601

PATIENT

DRUGS (3)
  1. PEGASYS [Suspect]
     Route: 065
  2. PEGASYS [Suspect]
     Dosage: PATIENT IN WEEK 30
     Route: 065
  3. RIBAVIRIN [Suspect]
     Dosage: PATIENT IN WEEK 30
     Route: 065

REACTIONS (1)
  - FAT TISSUE INCREASED [None]
